FAERS Safety Report 5966234-X (Version None)
Quarter: 2008Q4

REPORT INFORMATION
  Report Type: 
  Country: None (occurrence: None)
  Receive Date: 20081125
  Receipt Date: 20081120
  Transmission Date: 20090506
  Serious: Yes (Death)
  Sender: FDA-Public Use
  Company Number: JP-AVENTIS-200813448JP

PATIENT
  Age: 58 Year
  Sex: Female

DRUGS (4)
  1. DOCETAXEL [Suspect]
     Indication: METASTASES TO LYMPH NODES
     Dosage: DOSE: 1600/TOTAL
  2. CARBOPLATIN [Suspect]
     Dosage: DOSE: 32950/TOTAL
  3. PACLITAXEL [Suspect]
     Dosage: DOSE: 10290/TOTAL
  4. IRINOTECAN HYDROCHLORIDE [Suspect]
     Indication: METASTASES TO LYMPH NODES
     Dosage: DOSE: 1800/TOTAL

REACTIONS (1)
  - LEUKAEMIA [None]
